FAERS Safety Report 10222261 (Version 1)
Quarter: 2014Q2

REPORT INFORMATION
  Report Type: Spontaneous
  Country: ES (occurrence: ES)
  Receive Date: 20140606
  Receipt Date: 20140606
  Transmission Date: 20141212
  Serious: Yes (Death, Hospitalization)
  Sender: FDA-Public Use
  Company Number: ES-GLAXOSMITHKLINE-B0999305A

PATIENT
  Sex: Male

DRUGS (1)
  1. REVOLADE [Suspect]
     Indication: APLASTIC ANAEMIA
     Dosage: 50MG PER DAY
     Route: 048

REACTIONS (2)
  - Neutropenia [Fatal]
  - Off label use [Unknown]
